FAERS Safety Report 10245136 (Version 1)
Quarter: 2014Q2

REPORT INFORMATION
  Report Type: Spontaneous
  Country: US (occurrence: US)
  Receive Date: 20140618
  Receipt Date: 20140618
  Transmission Date: 20141212
  Serious: No
  Sender: FDA-Public Use
  Company Number: US-GALDERMA-US14000793

PATIENT
  Age: 55 Year
  Sex: Female

DRUGS (3)
  1. MIRVASO (BRIMONIDINE) TOPICAL GEL, 0.33% [Suspect]
     Indication: ROSACEA
     Dosage: 0.33%
     Route: 061
     Dates: start: 20140117, end: 20140215
  2. METFORMIN [Concomitant]
     Indication: TYPE 2 DIABETES MELLITUS
     Route: 048
     Dates: start: 2012
  3. FINACEA (AZELAIC ACID) [Concomitant]
     Indication: ROSACEA
     Dosage: 15%
     Route: 061
     Dates: start: 200602

REACTIONS (5)
  - Rebound effect [Recovered/Resolved]
  - Condition aggravated [Recovered/Resolved]
  - Skin warm [Recovered/Resolved]
  - Erythema [Recovered/Resolved]
  - Off label use [Recovered/Resolved]
